FAERS Safety Report 11043098 (Version 1)
Quarter: 2015Q2

REPORT INFORMATION
  Report Type: Spontaneous
  Country: US (occurrence: None)
  Receive Date: 20150416
  Receipt Date: 20150416
  Transmission Date: 20150821
  Serious: No
  Sender: FDA-Public Use
  Company Number: None

PATIENT
  Age: 30 Year
  Sex: Male

DRUGS (11)
  1. SANCUSO [Suspect]
     Active Substance: GRANISETRON
     Indication: NEOPLASM MALIGNANT
     Dosage: 3.1 MG/24 HR PATCH
     Route: 061
     Dates: start: 20140918
  2. MORPHINE [Concomitant]
     Active Substance: MORPHINE
  3. DECADRON [Concomitant]
     Active Substance: DEXAMETHASONE
  4. VITAMINS [Concomitant]
     Active Substance: VITAMINS
  5. SANCUSO [Suspect]
     Active Substance: GRANISETRON
     Indication: NERVOUS SYSTEM DISORDER
     Dosage: 3.1 MG/24 HR PATCH
     Route: 061
     Dates: start: 20140918
  6. ATIVAN [Concomitant]
     Active Substance: LORAZEPAM
  7. FENTANYL. [Concomitant]
     Active Substance: FENTANYL
  8. LOMUSTINE. [Concomitant]
     Active Substance: LOMUSTINE
  9. NORCO [Concomitant]
     Active Substance: ACETAMINOPHEN\HYDROCODONE BITARTRATE
  10. DILAUDID [Concomitant]
     Active Substance: HYDROMORPHONE HYDROCHLORIDE
  11. LYRICA [Concomitant]
     Active Substance: PREGABALIN

REACTIONS (1)
  - Brain neoplasm [None]

NARRATIVE: CASE EVENT DATE: 20150413
